FAERS Safety Report 7670144-X (Version None)
Quarter: 2011Q3

REPORT INFORMATION
  Report Type: 
  Country: None (occurrence: None)
  Receive Date: 20110808
  Receipt Date: 20110728
  Transmission Date: 20111222
  Serious: Yes (Other)
  Sender: FDA-Public Use
  Company Number: GR-ASTRAZENECA-2011SE46023

PATIENT
  Age: 72 Year
  Sex: Male

DRUGS (3)
  1. ZOLADEX [Concomitant]
     Indication: PROSTATE CANCER
     Route: 058
  2. LORAZEPAM [Concomitant]
     Route: 048
  3. CASODEX [Suspect]
     Indication: PROSTATE CANCER
     Route: 048
     Dates: start: 20110627, end: 20110712

REACTIONS (5)
  - METASTASES TO BONE [None]
  - HYPERHIDROSIS [None]
  - APTYALISM [None]
  - TONGUE DISORDER [None]
  - THIRST [None]
